FAERS Safety Report 24971877 (Version 4)
Quarter: 2025Q2

REPORT INFORMATION
  Report Type: Spontaneous
  Country: None (occurrence: CA)
  Receive Date: 20250214
  Receipt Date: 20250428
  Transmission Date: 20250716
  Serious: Yes (Death, Hospitalization, Other)
  Sender: MYLAN
  Company Number: CA-MYLANLABS-2024M1109445

PATIENT
  Age: 81 Year
  Sex: Female

DRUGS (5)
  1. REVATIO [Suspect]
     Active Substance: SILDENAFIL CITRATE
     Indication: Connective tissue disorder
     Dosage: 20 MILLIGRAM, TID (THREE TIMES A DAY)
     Dates: start: 20220527
  2. COVID-19 VACCINE NOS [Suspect]
     Active Substance: COVID-19 VACCINE
     Indication: Product used for unknown indication
     Dates: start: 20241128, end: 20241128
  3. INFLUENZA VIRUS VACCINE [Suspect]
     Active Substance: INFLUENZA VIRUS VACCINE
     Indication: Product used for unknown indication
     Dates: start: 20241128, end: 20241128
  4. UPTRAVI [Concomitant]
     Active Substance: SELEXIPAG
  5. AMBRISENTAN [Concomitant]
     Active Substance: AMBRISENTAN

REACTIONS (7)
  - Death [Fatal]
  - Pelvic fracture [Not Recovered/Not Resolved]
  - Adverse event [Unknown]
  - Neck pain [Recovered/Resolved]
  - Gastrooesophageal reflux disease [Unknown]
  - Pain in extremity [Unknown]
  - Headache [Recovered/Resolved]

NARRATIVE: CASE EVENT DATE: 20241101
